FAERS Safety Report 5050437-5 (Version None)
Quarter: 2006Q3

REPORT INFORMATION
  Report Type: 
  Country: None (occurrence: None)
  Receive Date: 20060707
  Receipt Date: 20060627
  Transmission Date: 20061208
  Serious: Yes (Hospitalization)
  Sender: FDA-Public Use
  Company Number: 2006US001284

PATIENT
  Age: 61 Year
  Sex: Female
  Weight: 54 kg

DRUGS (9)
  1. ADENOSCAN [Suspect]
     Indication: SCAN MYOCARDIAL PERFUSION
     Dosage: 38.9 MG, IV NOS
     Route: 042
     Dates: start: 20060614, end: 20060614
  2. THALLIUM CHLORIDE (THALLOUS CHLORIDE) [Concomitant]
  3. TRAPIDIL (TRAPIDIL) [Concomitant]
  4. SIMVASTATIN [Concomitant]
  5. NIFEDIPINE [Concomitant]
  6. TEMOCAPRIL HYDROCHLORIDE (TEMOCAPRIL HYDROCHLORIDE) [Concomitant]
  7. VOGLIBOSE (VOGLIBOSE) [Concomitant]
  8. TEPRENONE (TEPRENONE) [Concomitant]
  9. INSULIN HUMAN (INSULIN HUMAN) [Concomitant]

REACTIONS (6)
  - ANGINA PECTORIS [None]
  - ATRIOVENTRICULAR BLOCK FIRST DEGREE [None]
  - CORONARY ARTERY STENOSIS [None]
  - MYOCARDIAL ISCHAEMIA [None]
  - NAUSEA [None]
  - VOMITING [None]
